FAERS Safety Report 11981814 (Version 1)
Quarter: 2016Q1

REPORT INFORMATION
  Report Type: Spontaneous
  Country: US (occurrence: None)
  Receive Date: 20160129
  Receipt Date: 20160129
  Transmission Date: 20160526
  Serious: No
  Sender: FDA-Public Use
  Company Number: None

PATIENT
  Age: 37 Year
  Sex: Female

DRUGS (1)
  1. GILENYA [Suspect]
     Active Substance: FINGOLIMOD HYDROCHLORIDE
     Indication: MULTIPLE SCLEROSIS
     Route: 048
     Dates: start: 20141022

REACTIONS (7)
  - Dyspnoea [None]
  - Vision blurred [None]
  - Anxiety [None]
  - Back pain [None]
  - Suicidal ideation [None]
  - Depression [None]
  - Lymphadenopathy [None]

NARRATIVE: CASE EVENT DATE: 20151216
